FAERS Safety Report 17893414 (Version 4)
Quarter: 2021Q1

REPORT INFORMATION
  Report Type: Report from Study
  Country: US (occurrence: US)
  Receive Date: 20200615
  Receipt Date: 20210331
  Transmission Date: 20210419
  Serious: Yes (Hospitalization)
  Sender: FDA-Public Use
  Company Number: US-SHIRE-US202018384

PATIENT
  Sex: Female

DRUGS (2)
  1. TEDUGLUTIDE [Suspect]
     Active Substance: TEDUGLUTIDE
     Indication: MALABSORPTION
     Dosage: 0.2770 UNK, QD
     Route: 058
  2. TEDUGLUTIDE [Suspect]
     Active Substance: TEDUGLUTIDE
     Dosage: 2.77 MILLIGRAM, QD
     Route: 058
     Dates: start: 20180608

REACTIONS (6)
  - Sinusitis [Unknown]
  - Weight increased [Unknown]
  - Limb injury [Unknown]
  - Foot fracture [Not Recovered/Not Resolved]
  - Pulmonary mass [Unknown]
  - Ligament sprain [Unknown]
